FAERS Safety Report 24535591 (Version 2)
Quarter: 2024Q4

REPORT INFORMATION
  Report Type: Spontaneous
  Country: CN (occurrence: CN)
  Receive Date: 20241022
  Receipt Date: 20241025
  Transmission Date: 20250114
  Serious: Yes (Hospitalization)
  Sender: DAIICHI
  Company Number: CN-DSJP-DS-2024-103384-CN

PATIENT
  Age: 84 Year
  Sex: Female
  Weight: 80 kg

DRUGS (2)
  1. TRASTUZUMAB DERUXTECAN [Suspect]
     Active Substance: TRASTUZUMAB DERUXTECAN
     Indication: Breast cancer
     Dosage: 210 MG, QD
     Route: 041
     Dates: start: 20240928, end: 20240928
  2. DEXTROSE [Concomitant]
     Active Substance: DEXTROSE MONOHYDRATE
     Indication: Vehicle solution use
     Dosage: 250 ML, QD
     Route: 041
     Dates: start: 20240928, end: 20240928

REACTIONS (3)
  - Melaena [Recovering/Resolving]
  - Gastrointestinal haemorrhage [Unknown]
  - Diarrhoea [Unknown]

NARRATIVE: CASE EVENT DATE: 20241005
